FAERS Safety Report 15010006 (Version 3)
Quarter: 2024Q4

REPORT INFORMATION
  Report Type: Spontaneous
  Country: US (occurrence: US)
  Receive Date: 20180614
  Receipt Date: 20241015
  Transmission Date: 20250114
  Serious: No
  Sender: PFIZER
  Company Number: US-PFIZER INC-2018237405

PATIENT
  Age: 68 Year
  Sex: Female
  Weight: 68.027 kg

DRUGS (1)
  1. SOMAVERT [Suspect]
     Active Substance: PEGVISOMANT
     Indication: Acromegaly
     Dosage: UNK
     Dates: start: 2005

REACTIONS (4)
  - Fat tissue increased [Not Recovered/Not Resolved]
  - Lack of administration site rotation [Not Recovered/Not Resolved]
  - Poor quality product administered [Unknown]
  - Product complaint [Unknown]
